FAERS Safety Report 23757365 (Version 2)
Quarter: 2024Q2

REPORT INFORMATION
  Report Type: Spontaneous
  Country: US (occurrence: None)
  Receive Date: 20240418
  Receipt Date: 20240503
  Transmission Date: 20240715
  Serious: Yes (Other)
  Sender: FDA-Public Use
  Company Number: US-ROCHE-3548271

PATIENT
  Age: 61 Year
  Sex: Female
  Weight: 236 kg

DRUGS (1)
  1. EVRYSDI [Suspect]
     Active Substance: RISDIPLAM
     Indication: Spinal muscular atrophy
     Route: 048
     Dates: start: 20210508

REACTIONS (1)
  - Vertebral artery occlusion [Unknown]

NARRATIVE: CASE EVENT DATE: 20240319
